FAERS Safety Report 4611389-2 (Version None)
Quarter: 2005Q1

REPORT INFORMATION
  Report Type: 
  Country: None (occurrence: None)
  Receive Date: 20050315
  Receipt Date: 20050315
  Transmission Date: 20050727
  Serious: Yes (Hospitalization)
  Sender: FDA-Public Use
  Company Number: None

PATIENT
  Sex: Male
  Weight: 87.3 kg

DRUGS (10)
  1. CARMUSTINE [Suspect]
     Indication: GLIOBLASTOMA MULTIFORME
     Dosage: 206 MG IV ONCE Q 6 WEEKS
     Route: 042
     Dates: start: 20041210
  2. TOPOTECAN 1.5 MG/M2 72 HR [Suspect]
     Indication: GLIOBLASTOMA MULTIFORME
     Dosage: 3.1MG IV OVER 72 HOURS WEEKLY X 6 WKS
     Dates: start: 20041210, end: 20050120
  3. DILANTIN [Concomitant]
  4. LEXAPRO [Concomitant]
  5. DECADRON [Concomitant]
  6. ZANTAC [Concomitant]
  7. HYDROCODONE BITARTRATE [Concomitant]
  8. PHENERGAN [Concomitant]
  9. LEVAQUIN [Concomitant]
  10. AMBIEN [Concomitant]

REACTIONS (8)
  - BRAIN HERNIATION [None]
  - BRAIN OEDEMA [None]
  - DYSPNOEA [None]
  - GENERAL PHYSICAL HEALTH DETERIORATION [None]
  - GLIOBLASTOMA MULTIFORME [None]
  - MALIGNANT NEOPLASM PROGRESSION [None]
  - PNEUMONIA [None]
  - PNEUMONIA ASPIRATION [None]
